FAERS Safety Report 5064020-9 (Version None)
Quarter: 2006Q3

REPORT INFORMATION
  Report Type: 
  Country: None (occurrence: None)
  Receive Date: 20060706
  Receipt Date: 20060424
  Transmission Date: 20061208
  Serious: No
  Sender: FDA-Public Use
  Company Number: 200612569BWH

PATIENT
  Age: 63 Year
  Sex: Male

DRUGS (11)
  1. LEVITRA [Suspect]
     Dosage: 20 MG, TOTAL DAILY, ORAL
     Route: 048
     Dates: start: 20051101
  2. PROZAC [Concomitant]
  3. NEURONTIN [Concomitant]
  4. METHADONE HCL [Concomitant]
  5. BACLOFEN [Concomitant]
  6. VALIUM [Concomitant]
  7. GLUCOPHAGE XR [Concomitant]
  8. FLONASE [Concomitant]
  9. NEXIUM [Concomitant]
  10. LAXATIVE [Concomitant]
  11. GLUCOTROL [Concomitant]

REACTIONS (1)
  - BLADDER CATHETERISATION [None]
